FAERS Safety Report 10266741 (Version 1)
Quarter: 2014Q2

REPORT INFORMATION
  Report Type: Spontaneous
  Country: US (occurrence: None)
  Receive Date: 20140625
  Receipt Date: 20140625
  Transmission Date: 20141212
  Serious: Yes (Disabling, Other)
  Sender: FDA-Public Use
  Company Number: None

PATIENT
  Age: 47 Year
  Sex: Female
  Weight: 68.04 kg

DRUGS (3)
  1. HUMIRA [Suspect]
     Indication: CROHN^S DISEASE
     Dosage: FOUR 40 MG INJECTIONS TWO INJJ THEN ONE, INTO THE MUSCLE
     Route: 030
     Dates: start: 20140513
  2. HUMIRA [Suspect]
     Indication: DIARRHOEA
     Dosage: FOUR 40 MG INJECTIONS TWO INJJ THEN ONE, INTO THE MUSCLE
     Route: 030
     Dates: start: 20140513
  3. HUMIRA [Suspect]
     Indication: ABDOMINAL PAIN
     Dosage: FOUR 40 MG INJECTIONS TWO INJJ THEN ONE, INTO THE MUSCLE
     Route: 030
     Dates: start: 20140513

REACTIONS (6)
  - Pain [None]
  - Pain in extremity [None]
  - Arthralgia [None]
  - Dysstasia [None]
  - Pain in extremity [None]
  - Pain in extremity [None]
